FAERS Safety Report 12560120 (Version 1)
Quarter: 2016Q3

REPORT INFORMATION
  Report Type: Spontaneous
  Country: US (occurrence: None)
  Receive Date: 20160714
  Receipt Date: 20160714
  Transmission Date: 20161109
  Serious: Yes (Hospitalization)
  Sender: FDA-Public Use
  Company Number: None

PATIENT
  Age: 70 Year
  Sex: Female
  Weight: 111.13 kg

DRUGS (8)
  1. XARELTO [Suspect]
     Active Substance: RIVAROXABAN
     Indication: ATRIAL FIBRILLATION
     Route: 048
     Dates: start: 20160616, end: 20160708
  2. NORVASC [Concomitant]
     Active Substance: AMLODIPINE BESYLATE
  3. NEUROTIN [Concomitant]
     Active Substance: GABAPENTIN
  4. CPAP MACHINE [Concomitant]
  5. ATENOLOL. [Concomitant]
     Active Substance: ATENOLOL
  6. SYNTHROID [Concomitant]
     Active Substance: LEVOTHYROXINE SODIUM
  7. CARAFATE [Concomitant]
     Active Substance: SUCRALFATE
  8. NEXIUM [Concomitant]
     Active Substance: ESOMEPRAZOLE MAGNESIUM

REACTIONS (3)
  - Gastrointestinal haemorrhage [None]
  - Petechiae [None]
  - Muscle spasms [None]

NARRATIVE: CASE EVENT DATE: 20160709
